FAERS Safety Report 9547710 (Version 2)
Quarter: 2013Q4

REPORT INFORMATION
  Report Type: Report from Study
  Country: CO (occurrence: CO)
  Receive Date: 20130924
  Receipt Date: 20131001
  Transmission Date: 20140711
  Serious: Yes (Other)
  Sender: FDA-Public Use
  Company Number: CO-ROCHE-1279500

PATIENT
  Sex: Female
  Weight: 55 kg

DRUGS (5)
  1. XOLAIR [Suspect]
     Indication: ASTHMA
     Route: 058
     Dates: start: 201303
  2. DEFLAZACORT [Concomitant]
  3. MOMETASONE FUROATE [Concomitant]
  4. FEXOFENADINE [Concomitant]
  5. MONTELUKAST [Concomitant]

REACTIONS (1)
  - Serum sickness [Recovered/Resolved]
